FAERS Safety Report 21888109 (Version 2)
Quarter: 2023Q1

REPORT INFORMATION
  Report Type: Spontaneous
  Country: US (occurrence: US)
  Receive Date: 20230120
  Receipt Date: 20230215
  Transmission Date: 20230418
  Serious: No
  Sender: FDA-Public Use
  Company Number: US-BRISTOL-MYERS SQUIBB COMPANY-2023-009066

PATIENT
  Age: 73 Year
  Sex: Male

DRUGS (1)
  1. REVLIMID [Suspect]
     Active Substance: LENALIDOMIDE
     Indication: Plasmacytoma
     Route: 048
     Dates: start: 202212

REACTIONS (5)
  - Oral pain [Unknown]
  - Off label use [Unknown]
  - Constipation [Unknown]
  - Rash [Unknown]
  - Ageusia [Unknown]

NARRATIVE: CASE EVENT DATE: 20221222
